FAERS Safety Report 9116607 (Version 1)
Quarter: 2013Q1

REPORT INFORMATION
  Report Type: Report from Study
  Country: CA (occurrence: CA)
  Receive Date: 20130225
  Receipt Date: 20130225
  Transmission Date: 20140127
  Serious: Yes (Other)
  Sender: FDA-Public Use
  Company Number: CA-JNJFOC-20130211474

PATIENT
  Sex: Female
  Weight: 55 kg

DRUGS (4)
  1. REMICADE [Suspect]
     Indication: CROHN^S DISEASE
     Dosage: 16 INFUSIONS
     Route: 042
     Dates: start: 20100901
  2. CELEBREX [Concomitant]
     Route: 065
  3. AXERT [Concomitant]
     Route: 065
  4. RELPAX [Concomitant]
     Route: 065

REACTIONS (2)
  - Migraine [Not Recovered/Not Resolved]
  - Visual field defect [Not Recovered/Not Resolved]
